FAERS Safety Report 19280217 (Version 1)
Quarter: 2021Q2

REPORT INFORMATION
  Report Type: Spontaneous
  Country: NL (occurrence: NL)
  Receive Date: 20210520
  Receipt Date: 20210520
  Transmission Date: 20210717
  Serious: Yes (Life-Threatening)
  Sender: FDA-Public Use
  Company Number: NL-TEVA-2021-NL-1911859

PATIENT
  Age: 71 Year
  Sex: Female
  Weight: 60 kg

DRUGS (9)
  1. CLOPIDOGREL TABLET   75MG / BRAND NAME NOT SPECIFIED [Suspect]
     Active Substance: CLOPIDOGREL BISULFATE
     Indication: PRODUCT USED FOR UNKNOWN INDICATION
     Dosage: 1 DOSAGE FORMS DAILY;
     Dates: start: 202104, end: 20210425
  2. COTRIMOXAZOL 960 TABLET 160/800MG / BACTRIM FORTE TABLET 960MG [Concomitant]
     Dosage: THERAPY START DATE AND END DATE : ASKU
  3. FUROSEMIDE / BRAND NAME NOT SPECIFIED [Concomitant]
     Dosage: THERAPY START DATE AND END DATE : ASKU
  4. SPIRONOLACTON / BRAND NAME NOT SPECIFIED [Concomitant]
     Dosage: THERAPY START DATE AND END DATE : ASKU
  5. CALCIUMCARB/COLECALC KAUWTB 1,25G/400IE (500MG CA) / CALCI CHEW D3 KAU [Concomitant]
     Dosage: THERAPY START DATE AND END DATE : ASKU
  6. VALACICLOVIR TABLET  250MG / BRAND NAME NOT SPECIFIED [Concomitant]
     Active Substance: VALACYCLOVIR HYDROCHLORIDE
     Dosage: THERAPY START DATE AND END DATE : ASKU
  7. PANTOPRAZOL TABLET MSR 20MG / BRAND NAME NOT SPECIFIED [Concomitant]
     Active Substance: PANTOPRAZOLE
     Dosage: THERAPY START DATE AND END DATE : ASKU
  8. ALENDRONINEZUUR DRANK 0,7MG/ML / BRAND NAME NOT SPECIFIED [Concomitant]
     Dosage: BEVERAGE, 0,7 MG/ML (MILLIGRAM PER MILLILITER) , THERAPY START DATE AND END DATE : ASKU
  9. SIMVASTATINE TABLET FO 10MG / BRAND NAME NOT SPECIFIED [Concomitant]
     Active Substance: SIMVASTATIN
     Dosage: THERAPY START DATE AND END DATE : ASKU

REACTIONS (3)
  - Blood urine present [Unknown]
  - Haematochezia [Unknown]
  - Thrombocytopenia [Not Recovered/Not Resolved]

NARRATIVE: CASE EVENT DATE: 20210425
